FAERS Safety Report 20950083 (Version 1)
Quarter: 2022Q2

REPORT INFORMATION
  Report Type: Spontaneous
  Country: IN (occurrence: IN)
  Receive Date: 20220613
  Receipt Date: 20220613
  Transmission Date: 20220720
  Serious: Yes (Life-Threatening, Hospitalization, Other)
  Sender: FDA-Public Use
  Company Number: IN-MLMSERVICE-20220520-3571391-1

PATIENT
  Age: 6 Year
  Sex: Male
  Weight: 20 kg

DRUGS (12)
  1. TOPIRAMATE [Interacting]
     Active Substance: TOPIRAMATE
     Indication: Epilepsy
     Dosage: UNK
     Route: 065
  2. TOPIRAMATE [Interacting]
     Active Substance: TOPIRAMATE
     Indication: Focal dyscognitive seizures
  3. OXCARBAZEPINE [Suspect]
     Active Substance: OXCARBAZEPINE
     Indication: Epilepsy
     Dosage: UNK
     Route: 065
  4. OXCARBAZEPINE [Suspect]
     Active Substance: OXCARBAZEPINE
     Indication: Focal dyscognitive seizures
  5. CLOBAZAM [Suspect]
     Active Substance: CLOBAZAM
     Indication: Epilepsy
     Dosage: UNK
     Route: 065
  6. CLOBAZAM [Suspect]
     Active Substance: CLOBAZAM
     Indication: Focal dyscognitive seizures
  7. GLYCOPYRROLATE [Interacting]
     Active Substance: GLYCOPYRROLATE
     Indication: Induction of anaesthesia
     Dosage: 0.1 MG
     Route: 065
  8. VECURONIUM [Concomitant]
     Active Substance: VECURONIUM BROMIDE
     Indication: Induction of anaesthesia
     Dosage: 0.1 MILLIGRAM/KILOGRAM
     Route: 065
  9. SEVOFLURANE [Concomitant]
     Active Substance: SEVOFLURANE
     Indication: Maintenance of anaesthesia
     Dosage: UNK
     Route: 065
  10. FENTANYL [Concomitant]
     Active Substance: FENTANYL
     Indication: Induction of anaesthesia
     Dosage: 2 MICROGRAM/KILOGRAM
     Route: 065
  11. THIOPENTAL [Concomitant]
     Active Substance: THIOPENTAL
     Indication: Induction of anaesthesia
     Dosage: 5 MILLIGRAM/KILOGRAM
     Route: 065
  12. OXYGEN [Concomitant]
     Active Substance: OXYGEN
     Indication: Product used for unknown indication
     Dosage: UNK
     Route: 065

REACTIONS (4)
  - Hyperthermia [Recovered/Resolved]
  - Drug interaction [Unknown]
  - Drug ineffective for unapproved indication [Unknown]
  - Off label use [None]
